FAERS Safety Report 9531214 (Version 1)
Quarter: 2013Q2

REPORT INFORMATION
  Report Type: Spontaneous
  Country: US (occurrence: None)
  Receive Date: 20130418
  Receipt Date: 20130418
  Transmission Date: 20140414
  Serious: Yes (Hospitalization)
  Sender: FDA-Public Use
  Company Number: 1031USA002597

PATIENT
  Age: 15 Year
  Sex: Male

DRUGS (8)
  1. MONTELUKAST SODIUM [Suspect]
     Dosage: RESPIRATORY (INHALATION)?
     Route: 055
  2. ALBUTEROL (ALBUTEROL) [Suspect]
  3. FLUTICASONE PROPIONATE [Suspect]
     Route: 045
  4. LORATIDINE [Suspect]
  5. FLUTICASONE PROPIONATE (+) SALMETEROL XINAFOATE [Suspect]
     Dosage: 100/100, RESPIRATORY (INHALATION)?
     Route: 055
  6. XOLAIR (OMALIZUMAB) [Suspect]
     Dosage: 3 DOSES (300 MG) DURING A 6-WEEK PERIOD BEFORE ADMISSION
  7. IPRATROPIUM BROMIDE [Suspect]
     Dosage: RESPIRATORY (INHALATION)?
     Route: 055
  8. RANITIDINE (RANITIDINE) [Suspect]

REACTIONS (2)
  - Drug ineffective [None]
  - Asthma [None]
